APPROVED DRUG PRODUCT: BONDLIDO
Active Ingredient: LIDOCAINE
Strength: 10%
Dosage Form/Route: SYSTEM;TOPICAL
Application: N215029 | Product #001
Applicant: MEDRX USA INC
Approved: Sep 24, 2025 | RLD: Yes | RS: Yes | Type: RX

EXCLUSIVITY:
Code: NP | Date: Sep 24, 2028